FAERS Safety Report 12639749 (Version 1)
Quarter: 2016Q3

REPORT INFORMATION
  Report Type: Spontaneous
  Country: US (occurrence: None)
  Receive Date: 20160809
  Receipt Date: 20160809
  Transmission Date: 20161109
  Serious: Yes (Disabling)
  Sender: FDA-Public Use
  Company Number: None

PATIENT
  Age: 65 Year
  Sex: Female
  Weight: 59.88 kg

DRUGS (11)
  1. IBUPROFEN. [Concomitant]
     Active Substance: IBUPROFEN
  2. SPIRALINA [Concomitant]
  3. FISH OIL [Concomitant]
     Active Substance: FISH OIL
  4. MULTIVITAMIN [Concomitant]
     Active Substance: VITAMINS
  5. VITAMIN B12 [Concomitant]
     Active Substance: CYANOCOBALAMIN
  6. KIRKLAND SIGNATURE ALLER TEC ALLERGY [Concomitant]
     Active Substance: CETIRIZINE HYDROCHLORIDE
  7. CIPROFLOXACN 500MG TEVA [Suspect]
     Active Substance: CIPROFLOXACIN
     Indication: CELLULITIS
     Route: 048
     Dates: start: 20160712, end: 20160719
  8. CALCIUM [Concomitant]
     Active Substance: CALCIUM
  9. MAGNESIUM [Concomitant]
     Active Substance: MAGNESIUM
  10. PREVACID [Concomitant]
     Active Substance: LANSOPRAZOLE
  11. VITAMIN D3 [Concomitant]
     Active Substance: CHOLECALCIFEROL

REACTIONS (7)
  - Head discomfort [None]
  - Fatigue [None]
  - Night sweats [None]
  - Rash [None]
  - Neuralgia [None]
  - Ocular discomfort [None]
  - Photosensitivity reaction [None]

NARRATIVE: CASE EVENT DATE: 20160712
